FAERS Safety Report 11706949 (Version 2)
Quarter: 2015Q4

REPORT INFORMATION
  Report Type: Spontaneous
  Country: US (occurrence: US)
  Receive Date: 20151104
  Receipt Date: 20151110
  Transmission Date: 20160304
  Serious: No
  Sender: FDA-Public Use
  Company Number: US-ELI_LILLY_AND_COMPANY-US201012004761

PATIENT
  Sex: Female

DRUGS (2)
  1. FORTEO [Suspect]
     Active Substance: TERIPARATIDE
     Dosage: 20 UG, QD
  2. FORTEO [Suspect]
     Active Substance: TERIPARATIDE
     Indication: OSTEOPOROSIS
     Dosage: 20 UG, DAILY (1/D)
     Dates: start: 201011

REACTIONS (9)
  - Blood calcium decreased [Unknown]
  - Bronchitis [Recovered/Resolved]
  - Pain [Unknown]
  - Muscle spasms [Unknown]
  - Body height decreased [Unknown]
  - Back disorder [Unknown]
  - Back injury [Unknown]
  - Drug dose omission [Unknown]
  - Bronchitis [Unknown]
